FAERS Safety Report 8103466-9 (Version None)
Quarter: 2012Q1

REPORT INFORMATION
  Report Type: 
  Country: None (occurrence: None)
  Receive Date: 20120201
  Receipt Date: 20120126
  Transmission Date: 20120608
  Serious: Yes (Hospitalization)
  Sender: FDA-Public Use
  Company Number: CA-ROCHE-751744

PATIENT
  Sex: Female
  Weight: 60 kg

DRUGS (28)
  1. PERTUZUMAB [Suspect]
     Indication: BREAST CANCER
     Dosage: LOADING DOSE, LAST DSOE PRIOR TO SAE:22 DEC 2010
     Route: 042
  2. HERCEPTIN [Suspect]
     Dosage: DOSE FORM INFUSION, LAST DOSE PRIOR TO SAE ON 03 FEB 2011
     Route: 042
  3. DOCETAXEL [Suspect]
     Route: 042
  4. CARBOPLATIN [Suspect]
     Route: 042
  5. ATIVAN [Concomitant]
     Dates: start: 20070101, end: 20110202
  6. HERCEPTIN [Suspect]
     Indication: BREAST CANCER
     Dosage: LOADING DOSE;LAST DOSE PRIOR TO SAE:22 DEC 2010
     Route: 042
  7. CARBOPLATIN [Suspect]
     Dosage: LAST DOSE PRIOR TO SAE ON 03 FEB 2011
     Route: 042
  8. PERCOCET [Concomitant]
     Dates: start: 20101207, end: 20101222
  9. IMODIUM [Concomitant]
     Dates: start: 20101228, end: 20110113
  10. PHENAZOPYRIDINE HCL TAB [Concomitant]
     Dates: start: 20101230, end: 20101231
  11. PERTUZUMAB [Suspect]
     Dosage: LAST DOSE PRIOR TO SAE ON 03 FEB 2011
     Route: 042
  12. IMODIUM [Concomitant]
     Dates: start: 20110913, end: 20110914
  13. PHENAZOPYRIDINE HCL TAB [Concomitant]
     Dates: start: 20110201, end: 20110214
  14. ONDANSETRON [Concomitant]
     Dates: start: 20110210, end: 20110211
  15. ACETAMINOPHEN [Concomitant]
     Dosage: TDD: 4-8 TABLETS
     Dates: start: 20110210, end: 20110211
  16. DOCETAXEL [Suspect]
     Indication: BREAST CANCER
     Dosage: LAST DOSE PRIOR TO SAE ON 03 FEB 2011
     Route: 042
  17. CARBOPLATIN [Suspect]
     Indication: BREAST CANCER
     Dosage: FORM: INFUSION,
     Route: 042
  18. OMNARIS [Concomitant]
     Dates: start: 20001209, end: 20101222
  19. ALBUTEROL SULFATE AUTOHALER [Concomitant]
     Dosage: TDD: 4-8 PUFF
     Dates: start: 20101209, end: 20101222
  20. ACETAMINOPHEN [Concomitant]
     Dates: start: 19750101, end: 20110112
  21. ADVAIR DISKUS 100/50 [Concomitant]
     Dosage: TDD: 4 PUFFS
     Dates: start: 20101209, end: 20101222
  22. IMODIUM [Concomitant]
     Dates: start: 20110401, end: 20110411
  23. ZANTAC [Concomitant]
     Dates: start: 20101230, end: 20110410
  24. AMOXICILLIN [Concomitant]
     Dates: start: 20110202, end: 20110214
  25. ONDANSETRON HCL [Concomitant]
     Dates: start: 20091229, end: 20110413
  26. IMOVANE [Concomitant]
  27. IBUPROFEN (ADVIL) [Concomitant]
     Dates: start: 20000101, end: 20110113
  28. NEUPOGEN [Concomitant]
     Dosage: TDD: 5 DOSES EVERY OTHER DAY
     Dates: start: 20110114, end: 20110423

REACTIONS (4)
  - DIARRHOEA [None]
  - FEBRILE NEUTROPENIA [None]
  - CLOSTRIDIUM DIFFICILE COLITIS [None]
  - NAUSEA [None]
